FAERS Safety Report 16984012 (Version 1)
Quarter: 2019Q4

REPORT INFORMATION
  Report Type: Spontaneous
  Country: CA (occurrence: CA)
  Receive Date: 20191101
  Receipt Date: 20191101
  Transmission Date: 20200122
  Serious: Yes (Life-Threatening, Hospitalization)
  Sender: FDA-Public Use
  Company Number: CA-PFIZER INC-2019468619

PATIENT
  Age: 14 Year
  Sex: Female
  Weight: 48.98 kg

DRUGS (2)
  1. ATIVAN [Suspect]
     Active Substance: LORAZEPAM
     Indication: BEHAVIOUR DISORDER
     Dosage: 1 MG, 2X/DAY
     Route: 060
  2. FLUOXETINE [Concomitant]
     Active Substance: FLUOXETINE HYDROCHLORIDE
     Dosage: UNK

REACTIONS (6)
  - Suicidal ideation [Recovering/Resolving]
  - Hallucination, auditory [Recovering/Resolving]
  - Product use issue [Unknown]
  - Aggression [Recovering/Resolving]
  - Suicidal behaviour [Recovering/Resolving]
  - Off label use [Unknown]
